FAERS Safety Report 8448147-7 (Version None)
Quarter: 2012Q2

REPORT INFORMATION
  Report Type: 
  Country: None (occurrence: None)
  Receive Date: 20120531
  Receipt Date: 20120522
  Transmission Date: 20120825
  Serious: Yes (Other)
  Sender: FDA-Public Use
  Company Number: 2012032248

PATIENT
  Age: 68 Year
  Sex: Female

DRUGS (21)
  1. MAGNESIUM (MAGNESIUIM) [Concomitant]
  2. ASPIRIN [Concomitant]
  3. PREDNISONE TAB [Concomitant]
  4. CENTRUM SILVER (CENTRUM SILVER) [Concomitant]
  5. METOPROLOL TARTRATE [Concomitant]
  6. BACTRIM [Concomitant]
  7. HIZENTRA [Suspect]
  8. LIDOCAINE [Concomitant]
  9. LIPITOR [Concomitant]
  10. TRAMADOL HCL [Concomitant]
  11. AZITHROMYCIN [Concomitant]
  12. GLIPIZIDE [Concomitant]
  13. LEVOTHYROXINE SODIUM [Concomitant]
  14. FUROSEMIDE [Concomitant]
  15. SPIRONOLACTONE [Concomitant]
  16. ALLOPURINOL [Concomitant]
  17. HIZENTRA [Suspect]
     Indication: IMMUNODEFICIENCY COMMON VARIABLE
     Dosage: 10 G 1X/WEEK, 50 ML 1-4 SITES OVER 1-2 HOURS, SUBCUTANEOUS
     Route: 058
     Dates: start: 20110601
  18. DIPHENHYDRAMINE HCL [Concomitant]
  19. ACETAMINOPHEN [Concomitant]
  20. FOSAMAX [Concomitant]
  21. GABAPENTIN [Concomitant]

REACTIONS (2)
  - CARDIAC FAILURE [None]
  - PROTEIN TOTAL INCREASED [None]
